FAERS Safety Report 9164893 (Version 1)
Quarter: 2013Q1

REPORT INFORMATION
  Report Type: Spontaneous
  Country: FR (occurrence: FR)
  Receive Date: 20130315
  Receipt Date: 20130315
  Transmission Date: 20140127
  Serious: Yes (Hospitalization)
  Sender: FDA-Public Use
  Company Number: FR-PFIZER INC-2013081315

PATIENT
  Age: 69 Year
  Sex: Male

DRUGS (6)
  1. RHINADVIL [Suspect]
     Indication: VIRAL INFECTION
     Dosage: UNK
     Dates: start: 2012
  2. TIXOCORTOL PIVALATE [Suspect]
     Indication: VIRAL INFECTION
     Dosage: UNK
     Dates: start: 2012
  3. MAXILASE [Suspect]
     Indication: VIRAL INFECTION
     Dosage: UNK
     Route: 048
     Dates: start: 2012
  4. DAFALGAN [Suspect]
     Indication: VIRAL INFECTION
     Dosage: UNK
     Dates: start: 2012
  5. INEXIUM [Suspect]
     Dosage: UNK
     Dates: start: 2012
  6. ZELITREX [Concomitant]

REACTIONS (3)
  - Rash [Recovered/Resolved]
  - Lip oedema [Recovered/Resolved]
  - Pyrexia [Recovered/Resolved]
